FAERS Safety Report 16924064 (Version 2)
Quarter: 2019Q4

REPORT INFORMATION
  Report Type: Spontaneous
  Country: US (occurrence: US)
  Receive Date: 20191016
  Receipt Date: 20191024
  Transmission Date: 20200122
  Serious: No
  Sender: FDA-Public Use
  Company Number: US-JNJFOC-20191018512

PATIENT
  Sex: Female
  Weight: 77.18 kg

DRUGS (3)
  1. LISINOPRIL. [Concomitant]
     Active Substance: LISINOPRIL
     Indication: BLOOD PRESSURE MEASUREMENT
     Route: 065
  2. AMLODIPINE [Concomitant]
     Active Substance: AMLODIPINE BESYLATE
     Indication: BLOOD PRESSURE MEASUREMENT
     Route: 065
  3. TREMFYA [Suspect]
     Active Substance: GUSELKUMAB
     Indication: PSORIASIS
     Route: 058
     Dates: start: 2019

REACTIONS (4)
  - Nail ridging [Not Recovered/Not Resolved]
  - Pain [Unknown]
  - Psoriasis [Not Recovered/Not Resolved]
  - Therapeutic response decreased [Unknown]

NARRATIVE: CASE EVENT DATE: 201905
